FAERS Safety Report 21469892 (Version 1)
Quarter: 2022Q4

REPORT INFORMATION
  Report Type: Spontaneous
  Country: JP (occurrence: JP)
  Receive Date: 20221018
  Receipt Date: 20221018
  Transmission Date: 20230113
  Serious: Yes (Other)
  Sender: FDA-Public Use
  Company Number: JP-NOVARTISPH-NVSJ2022JP098980

PATIENT
  Sex: Female

DRUGS (1)
  1. KYMRIAH [Suspect]
     Active Substance: TISAGENLECLEUCEL
     Indication: Diffuse large B-cell lymphoma
     Dosage: UNK
     Route: 041

REACTIONS (6)
  - Organising pneumonia [Unknown]
  - Cough [Unknown]
  - Pyrexia [Unknown]
  - Lung opacity [Unknown]
  - COVID-19 [Unknown]
  - Oropharyngeal pain [Recovered/Resolved]
